FAERS Safety Report 7916098-X (Version None)
Quarter: 2011Q4

REPORT INFORMATION
  Report Type: 
  Country: None (occurrence: None)
  Receive Date: 20111116
  Receipt Date: 20111111
  Transmission Date: 20120403
  Serious: Yes (Disabling)
  Sender: FDA-Public Use
  Company Number: GB-ROCHE-792279

PATIENT
  Age: 30 Year
  Sex: Female
  Weight: 60 kg

DRUGS (1)
  1. ISOTRETINOIN [Suspect]
     Indication: ACNE
     Route: 048
     Dates: start: 20100323, end: 20100325

REACTIONS (11)
  - AGGRESSION [None]
  - NASAL DISCOMFORT [None]
  - MEMORY IMPAIRMENT [None]
  - PAIN [None]
  - RASH [None]
  - OROPHARYNGEAL PAIN [None]
  - INFLAMMATION [None]
  - FATIGUE [None]
  - DEPRESSION [None]
  - MOOD SWINGS [None]
  - MOOD ALTERED [None]
